FAERS Safety Report 15544225 (Version 1)
Quarter: 2018Q4

REPORT INFORMATION
  Report Type: Spontaneous
  Country: GB (occurrence: GB)
  Receive Date: 20181024
  Receipt Date: 20181024
  Transmission Date: 20190205
  Serious: Yes (Other)
  Sender: FDA-Public Use
  Company Number: GB-TEVA-2018-GB-967651

PATIENT
  Age: 3 Month
  Sex: Male
  Weight: 6.34 kg

DRUGS (2)
  1. TRIMETHOPRIM. [Suspect]
     Active Substance: TRIMETHOPRIM
     Route: 048
     Dates: start: 20180912
  2. TRIMETHOPRIM. [Suspect]
     Active Substance: TRIMETHOPRIM
     Indication: HYDRONEPHROSIS
     Route: 048

REACTIONS (6)
  - Oral candidiasis [Unknown]
  - Crying [Recovering/Resolving]
  - Rash [Unknown]
  - Abdominal pain upper [Recovering/Resolving]
  - Dermatitis diaper [Unknown]
  - Diarrhoea [Recovering/Resolving]

NARRATIVE: CASE EVENT DATE: 20180912
